FAERS Safety Report 5120517-4 (Version None)
Quarter: 2006Q3

REPORT INFORMATION
  Report Type: 
  Country: None (occurrence: None)
  Receive Date: 20060928
  Receipt Date: 20060919
  Transmission Date: 20061208
  Serious: Yes (Death)
  Sender: FDA-Public Use
  Company Number: 2006113313

PATIENT
  Age: 59 Year
  Sex: Female
  Weight: 86 kg

DRUGS (13)
  1. IDARUBICIN HCL [Suspect]
     Indication: ACUTE MYELOID LEUKAEMIA
     Dosage: (17 MG, 1 IN 1 D), INTRAVENOUS
     Route: 042
     Dates: start: 20060830, end: 20060901
  2. ETOPOSIDE [Suspect]
     Indication: ACUTE MYELOID LEUKAEMIA
     Dosage: (140 MG, 1 IN 1 D), INTRAVENOUS
     Route: 042
     Dates: start: 20060830, end: 20060905
  3. CYTARABINE [Suspect]
     Indication: ACUTE MYELOID LEUKAEMIA
     Dosage: (5.6 GRAM, 2 IN 1 D), INTRAVENOUS
     Route: 042
     Dates: start: 20060830, end: 20060906
  4. ALLOPURINOL [Concomitant]
  5. TROPISETRON (TROPISETRON) [Concomitant]
  6. LORAZEPAM [Concomitant]
  7. METOPROLOL (METOPROLOL) [Concomitant]
  8. SERTRALINE [Concomitant]
  9. OMEPRAZOLE [Concomitant]
  10. ACETAMINOPHEN [Concomitant]
  11. FUROSEMIDE [Concomitant]
  12. METOCLOPRAMIDE [Concomitant]
  13. LOPERAMIDE HYDROCHLORIDE [Concomitant]

REACTIONS (26)
  - AGITATION [None]
  - ATRIAL FIBRILLATION [None]
  - BLOOD POTASSIUM INCREASED [None]
  - BLOOD PRESSURE SYSTOLIC INCREASED [None]
  - BRADYCARDIA [None]
  - BRADYPNOEA [None]
  - CARDIAC ARREST [None]
  - CARDIO-RESPIRATORY ARREST [None]
  - DYSPNOEA [None]
  - HAEMOGLOBIN INCREASED [None]
  - HAEMORRHAGE INTRACRANIAL [None]
  - HEART RATE IRREGULAR [None]
  - HYPOTENSION [None]
  - ILEUS [None]
  - INTESTINAL ISCHAEMIA [None]
  - LACTIC ACIDOSIS [None]
  - LOSS OF CONSCIOUSNESS [None]
  - NEUTROPENIC COLITIS [None]
  - PLATELET COUNT DECREASED [None]
  - PROTHROMBIN TIME PROLONGED [None]
  - PULSE ABSENT [None]
  - PUPIL FIXED [None]
  - PUPILS UNEQUAL [None]
  - RECTAL HAEMORRHAGE [None]
  - RESPIRATORY DISTRESS [None]
  - RESPIRATORY RATE INCREASED [None]
